FAERS Safety Report 9520064 (Version 12)
Quarter: 2014Q1

REPORT INFORMATION
  Report Type: Spontaneous
  Country: GB (occurrence: GB)
  Receive Date: 20130912
  Receipt Date: 20140326
  Transmission Date: 20141002
  Serious: Yes (Other)
  Sender: FDA-Public Use
  Company Number: PHFR2013GB004888

PATIENT
  Age: 46 Year
  Sex: Male

DRUGS (7)
  1. CLOZARIL [Suspect]
     Indication: SCHIZOPHRENIA
     Dosage: UNK
     Route: 048
     Dates: start: 20120912
  2. FERROUS SULPHATE [Concomitant]
     Dosage: 200 MG, BID
     Route: 048
  3. LANSOPRAZOLE [Concomitant]
     Dosage: 1 DF, QD
     Route: 048
  4. LEVOTHYROXINE [Concomitant]
     Dosage: 50 MG, QD
     Route: 048
  5. LITHIUM CARBONATE [Concomitant]
     Dosage: 600 MG, QD
  6. THIAMINE [Concomitant]
     Dosage: 100 MG, QD
  7. VITAMIN B C COMPLEX [Concomitant]
     Dosage: 1 DF, BID

REACTIONS (11)
  - Hepatitis C [Unknown]
  - Liver disorder [Unknown]
  - Platelet count decreased [Not Recovered/Not Resolved]
  - Hypothyroidism [Unknown]
  - Eye swelling [Unknown]
  - Malaise [Unknown]
  - Lethargy [Unknown]
  - Erythema [Unknown]
  - Hyperhidrosis [Unknown]
  - White blood cell count decreased [Recovered/Resolved]
  - Neutrophil count decreased [Recovered/Resolved]
